FAERS Safety Report 9656779 (Version 1)
Quarter: 2013Q4

REPORT INFORMATION
  Report Type: Spontaneous
  Country: FR (occurrence: FR)
  Receive Date: 20131030
  Receipt Date: 20131030
  Transmission Date: 20140711
  Serious: Yes (Other)
  Sender: FDA-Public Use
  Company Number: FR-PFIZER INC-2013304085

PATIENT
  Age: 47 Year
  Sex: Female

DRUGS (13)
  1. RHINADVIL [Suspect]
     Indication: NASAL CONGESTION
     Dosage: ONCE
  2. ADEPAL [Suspect]
     Indication: ORAL CONTRACEPTION
     Dosage: UNK
     Route: 048
     Dates: start: 1978, end: 1997
  3. ACTIFED JOUR ET NUIT [Suspect]
     Indication: NASAL CONGESTION
     Dosage: AT LEAST ONE COURSE OF 1 BOX PER YEAR
  4. DOLIRHUME [Suspect]
     Indication: NASAL CONGESTION
     Dosage: AT LEAST 1 COURSE OF 1 BOX PER YEAR
  5. HUMEX RHUME [Suspect]
     Indication: NASAL CONGESTION
     Dosage: AT LEAST 1 COURSE OF 1 BOX PER YEAR
  6. FERVEX RHUME [Suspect]
     Indication: NASAL CONGESTION
     Dosage: SEVERAL COURSES OF A FEW DAYS
  7. LEXOMIL [Suspect]
     Dosage: UP TO 2 TABLET DAILY
     Route: 048
     Dates: start: 1980, end: 1985
  8. LEXOMIL [Suspect]
     Dosage: ON DEMAND
     Route: 048
     Dates: start: 1985
  9. LYSANXIA [Suspect]
  10. TEMESTA [Suspect]
  11. SERESTA [Suspect]
  12. IBUPROFEN [Concomitant]
  13. ACETYLSALICYLIC ACID [Concomitant]

REACTIONS (1)
  - Pulmonary arterial hypertension [Not Recovered/Not Resolved]
